FAERS Safety Report 4548476-3 (Version None)
Quarter: 2005Q1

REPORT INFORMATION
  Report Type: 
  Country: None (occurrence: None)
  Receive Date: 20050105
  Receipt Date: 20050105
  Transmission Date: 20050727
  Serious: No
  Sender: FDA-Public Use
  Company Number: None

PATIENT

DRUGS (1)
  1. CELEBREX [Suspect]

REACTIONS (3)
  - DIARRHOEA [None]
  - INSOMNIA [None]
  - RASH [None]
